FAERS Safety Report 7206566-0 (Version None)
Quarter: 2011Q1

REPORT INFORMATION
  Report Type: 
  Country: None (occurrence: None)
  Receive Date: 20110103
  Receipt Date: 20101228
  Transmission Date: 20110831
  Serious: Yes (Death, Other)
  Sender: FDA-Public Use
  Company Number: PHBS2006US20266

PATIENT
  Sex: Male

DRUGS (1)
  1. EXJADE [Suspect]
     Dosage: 500 MG,
     Route: 048

REACTIONS (12)
  - PAIN [None]
  - HYPERSENSITIVITY [None]
  - BRAIN NEOPLASM MALIGNANT [None]
  - VISUAL ACUITY REDUCED [None]
  - MALAISE [None]
  - ABDOMINAL PAIN UPPER [None]
  - ASTHENIA [None]
  - SCREAMING [None]
  - DEATH [None]
  - ABASIA [None]
  - HEADACHE [None]
  - PHOTOSENSITIVITY REACTION [None]
